FAERS Safety Report 9349152 (Version 1)
Quarter: 2013Q2

REPORT INFORMATION
  Report Type: Spontaneous
  Country: US (occurrence: US)
  Receive Date: 20130614
  Receipt Date: 20130614
  Transmission Date: 20140414
  Serious: Yes (Hospitalization, Other)
  Sender: FDA-Public Use
  Company Number: US-UCBSA-088730

PATIENT
  Age: 32 Year
  Sex: Female
  Weight: 79.54 kg

DRUGS (1)
  1. CIMZIA [Suspect]
     Indication: CROHN^S DISEASE
     Route: 058
     Dates: start: 20121102, end: 2013

REACTIONS (2)
  - Hepatic enzyme increased [Recovered/Resolved]
  - Renal failure acute [Recovered/Resolved]
